FAERS Safety Report 5417489-1 (Version None)
Quarter: 2007Q3

REPORT INFORMATION
  Report Type: 
  Country: None (occurrence: None)
  Receive Date: 20070718
  Receipt Date: 20070430
  Transmission Date: 20080115
  Serious: Yes (Other)
  Sender: FDA-Public Use
  Company Number: 2007034475

PATIENT
  Age: 40 Year
  Sex: Female

DRUGS (1)
  1. CELEBREX [Suspect]
     Dosage: 200 MG
     Dates: start: 20070411

REACTIONS (5)
  - DYSPNOEA [None]
  - LIP SWELLING [None]
  - PRURITUS [None]
  - RASH [None]
  - SWELLING [None]
